FAERS Safety Report 7077201-X (Version None)
Quarter: 2010Q4

REPORT INFORMATION
  Report Type: 
  Country: None (occurrence: None)
  Receive Date: 20101101
  Receipt Date: 20101026
  Transmission Date: 20110411
  Serious: Yes (Other)
  Sender: FDA-Public Use
  Company Number: US-AMGEN-USASP2010001629

PATIENT

DRUGS (1)
  1. ENBREL [Suspect]
     Dates: start: 20080926, end: 20101018

REACTIONS (5)
  - COLOUR BLINDNESS [None]
  - CONFUSIONAL STATE [None]
  - NEUROPATHY PERIPHERAL [None]
  - TREMOR [None]
  - VISUAL IMPAIRMENT [None]
